FAERS Safety Report 4400603-4 (Version None)
Quarter: 2004Q3

REPORT INFORMATION
  Report Type: 
  Country: None (occurrence: None)
  Receive Date: 20040716
  Receipt Date: 20040716
  Transmission Date: 20050211
  Serious: No
  Sender: FDA-Public Use
  Company Number: None

PATIENT
  Age: 76 Year
  Sex: Male
  Weight: 67 kg

DRUGS (4)
  1. ABCIXIMAB (REOPRO) [Suspect]
     Dosage: IV 17CC /HR (.125 MCG/KG/MIN) X 12 H
     Route: 042
  2. ASPIRIN [Concomitant]
  3. PLAVIX [Concomitant]
  4. LOVENOX [Concomitant]

REACTIONS (6)
  - EPISTAXIS [None]
  - GASTROINTESTINAL HAEMORRHAGE [None]
  - HAEMATEMESIS [None]
  - HAEMOPTYSIS [None]
  - NAUSEA [None]
  - POST PROCEDURAL COMPLICATION [None]
